FAERS Safety Report 18589608 (Version 7)
Quarter: 2021Q3

REPORT INFORMATION
  Report Type: Report from Study
  Country: US (occurrence: US)
  Receive Date: 20201208
  Receipt Date: 20210901
  Transmission Date: 20211014
  Serious: Yes (Hospitalization, Other)
  Sender: FDA-Public Use
  Company Number: US-BIOVITRUM-2020US7196

PATIENT
  Age: 62 Year
  Sex: Male

DRUGS (1)
  1. KINERET [Suspect]
     Active Substance: ANAKINRA
     Indication: GOUT
     Dosage: ONCE DAILY FOR 3 DAYS AS NEEDED FOR GOUT FLARE UP
     Route: 058
     Dates: start: 20201120

REACTIONS (10)
  - Ear infection [Unknown]
  - Product dose omission issue [Unknown]
  - Constipation [Unknown]
  - Fall [Recovering/Resolving]
  - Diabetes mellitus [Unknown]
  - Renal impairment [Unknown]
  - Dehydration [Unknown]
  - Gout [Unknown]
  - Off label use [Not Recovered/Not Resolved]
  - COVID-19 [Unknown]

NARRATIVE: CASE EVENT DATE: 20201120
